FAERS Safety Report 9916186 (Version 2)
Quarter: 2014Q1

REPORT INFORMATION
  Report Type: Spontaneous
  Country: US (occurrence: US)
  Receive Date: 20140221
  Receipt Date: 20140314
  Transmission Date: 20141002
  Serious: Yes (Other)
  Sender: FDA-Public Use
  Company Number: US-ASTELLAS-2014US001597

PATIENT
  Age: 58 Year
  Sex: Male
  Weight: 111 kg

DRUGS (4)
  1. VESICARE [Suspect]
     Indication: HYPERTONIC BLADDER
     Dosage: 10 MG, UNKNOWN/D
     Route: 048
     Dates: start: 20100907, end: 20140227
  2. UNIVASC [Concomitant]
     Indication: PRODUCT USED FOR UNKNOWN INDICATION
     Dosage: UNK
     Route: 065
  3. NEXIUM                             /01479302/ [Concomitant]
     Indication: PRODUCT USED FOR UNKNOWN INDICATION
     Dosage: UNK
     Route: 065
  4. HYDROCHLOORTHIAZIDE [Concomitant]
     Indication: PRODUCT USED FOR UNKNOWN INDICATION
     Dosage: UNK
     Route: 065

REACTIONS (6)
  - Drug ineffective [Unknown]
  - Blood glucose abnormal [Not Recovered/Not Resolved]
  - Renal mass [Unknown]
  - Blood urine present [Unknown]
  - Diabetes mellitus [Unknown]
  - Nocturia [Not Recovered/Not Resolved]
